FAERS Safety Report 19665241 (Version 2)
Quarter: 2021Q3

REPORT INFORMATION
  Report Type: Report from Study
  Country: US (occurrence: US)
  Receive Date: 20210806
  Receipt Date: 20210901
  Transmission Date: 20211014
  Serious: No
  Sender: FDA-Public Use
  Company Number: NVSC2021US174528

PATIENT
  Sex: Female

DRUGS (2)
  1. TASIGNA [Suspect]
     Active Substance: NILOTINIB
     Indication: CHRONIC MYELOID LEUKAEMIA
     Dosage: UNK
     Route: 065
  2. TASIGNA [Suspect]
     Active Substance: NILOTINIB
     Dosage: 150 MG, BID
     Route: 065

REACTIONS (9)
  - Sneezing [Unknown]
  - Pruritus [Unknown]
  - Alopecia [Unknown]
  - Malaise [Unknown]
  - Trichodynia [Unknown]
  - Pyrexia [Unknown]
  - Cough [Unknown]
  - Rash [Unknown]
  - Viral infection [Unknown]
